FAERS Safety Report 16723271 (Version 1)
Quarter: 2019Q3

REPORT INFORMATION
  Report Type: Spontaneous
  Country: FR (occurrence: FR)
  Receive Date: 20190821
  Receipt Date: 20190821
  Transmission Date: 20191005
  Serious: Yes (Life-Threatening, Hospitalization)
  Sender: FDA-Public Use
  Company Number: FR-SUN PHARMACEUTICAL INDUSTRIES LTD-2019RR-218117

PATIENT
  Age: 48 Year
  Sex: Male
  Weight: 105 kg

DRUGS (4)
  1. PARACETAMOL [Suspect]
     Active Substance: ACETAMINOPHEN
     Indication: TOXICITY TO VARIOUS AGENTS
     Dosage: IN TOTAL
     Route: 048
     Dates: start: 20190125
  2. OLANZAPINE. [Suspect]
     Active Substance: OLANZAPINE
     Indication: TOXICITY TO VARIOUS AGENTS
     Dosage: IN TOTAL
     Route: 048
     Dates: start: 20190125
  3. CITALOPRAM [Suspect]
     Active Substance: CITALOPRAM HYDROBROMIDE
     Indication: TOXICITY TO VARIOUS AGENTS
     Dosage: 560 MILLIGRAM, UNK
     Route: 048
     Dates: start: 20190125
  4. DOXYLAMINE (SUCCINATE DE) [Suspect]
     Active Substance: DOXYLAMINE SUCCINATE
     Indication: TOXICITY TO VARIOUS AGENTS
     Route: 048
     Dates: start: 20190125

REACTIONS (3)
  - Vomiting [Recovered/Resolved]
  - Coma [Recovered/Resolved]
  - Vasoplegia syndrome [Recovered/Resolved]

NARRATIVE: CASE EVENT DATE: 20190125
